FAERS Safety Report 10222590 (Version 1)
Quarter: 2014Q2

REPORT INFORMATION
  Report Type: Spontaneous
  Country: US (occurrence: US)
  Receive Date: 20140606
  Receipt Date: 20140606
  Transmission Date: 20141212
  Serious: No
  Sender: FDA-Public Use
  Company Number: US-GILEAD-2014-0104619

PATIENT
  Age: 66 Year
  Sex: Female

DRUGS (20)
  1. LETAIRIS [Suspect]
     Indication: COR PULMONALE CHRONIC
     Dates: start: 20120503
  2. NITROFURANTOIN [Concomitant]
  3. ZOLOFT [Concomitant]
  4. ALLEGRA [Concomitant]
  5. METHOCARBAMOL [Concomitant]
  6. AMLODIPINE [Concomitant]
  7. LEXAPRO [Concomitant]
  8. MULTIVITAMIN                       /00097801/ [Concomitant]
  9. ASPIRIN [Concomitant]
  10. OXYCONTIN [Concomitant]
  11. HYDROCODONE/APAP [Concomitant]
  12. DILTIAZEM [Concomitant]
  13. BUSPAR [Concomitant]
  14. ATENOLOL [Concomitant]
  15. ZANTAC [Concomitant]
  16. TRAZODONE [Concomitant]
  17. CLONIDINE [Concomitant]
  18. COUMADIN                           /00014802/ [Concomitant]
  19. DIOVAN [Concomitant]
  20. NEXIUM                             /01479302/ [Concomitant]

REACTIONS (1)
  - Nasal congestion [Not Recovered/Not Resolved]
